FAERS Safety Report 16270379 (Version 1)
Quarter: 2019Q2

REPORT INFORMATION
  Report Type: Spontaneous
  Country: US (occurrence: US)
  Receive Date: 20190329
  Receipt Date: 20190329
  Transmission Date: 20190711
  Serious: No
  Sender: FDA-Public Use
  Company Number: None

PATIENT
  Sex: Female

DRUGS (2)
  1. RASUVO [Suspect]
     Active Substance: METHOTREXATE SODIUM
     Indication: RHEUMATOID ARTHRITIS
     Route: 058
     Dates: start: 20180322
  2. HUMIRA [Suspect]
     Active Substance: ADALIMUMAB
     Indication: RHEUMATOID ARTHRITIS
     Route: 058
     Dates: start: 20170813

REACTIONS (9)
  - Rash [None]
  - Palpitations [None]
  - Alopecia [None]
  - Chest discomfort [None]
  - Oropharyngeal pain [None]
  - Hypersensitivity [None]
  - Dizziness [None]
  - Fatigue [None]
  - Pruritus [None]
